FAERS Safety Report 3266643 (Version 5)
Quarter: 2014Q4

REPORT INFORMATION
  Report Type: Spontaneous
  Country: US (occurrence: US)
  Receive Date: 19990510
  Receipt Date: 20141103
  Transmission Date: 20150529
  Serious: Yes (Other)
  Sender: FDA-Public Use
  Company Number: M096286

PATIENT
  Age: 1 Day
  Sex: Female
  Weight: 3.81 kg

DRUGS (4)
  1. VIRACEPT [Suspect]
     Active Substance: NELFINAVIR MESYLATE
     Dosage: CONCEPTION-10/30/98
     Route: 064
     Dates: start: 19971024, end: 19981030
  2. VIRAMUNE [Suspect]
     Active Substance: NEVIRAPINE
     Route: 064
     Dates: start: 19981030, end: 19990418
  3. COMBIVIR [Suspect]
     Active Substance: LAMIVUDINE\ZIDOVUDINE
     Route: 064
     Dates: start: 19981030, end: 19990418
  4. ZERIT [Suspect]
     Active Substance: STAVUDINE
     Dosage: CONCEPTION-10/30/98
     Route: 064
     Dates: start: 19970106, end: 19981030

REACTIONS (4)
  - Hydronephrosis [Recovered/Resolved]
  - Cardiac murmur [Unknown]
  - Ear malformation [Not Recovered/Not Resolved]
  - Exposure during pregnancy [Recovered/Resolved]

NARRATIVE: CASE EVENT DATE: 1998
